FAERS Safety Report 8601106-3 (Version None)
Quarter: 2012Q3

REPORT INFORMATION
  Report Type: 
  Country: None (occurrence: None)
  Receive Date: 20120817
  Receipt Date: 20120813
  Transmission Date: 20120928
  Serious: Yes (Other)
  Sender: FDA-Public Use
  Company Number: PHEH2012US015917

PATIENT

DRUGS (1)
  1. ZOMETA [Suspect]

REACTIONS (1)
  - HYPERCALCAEMIA [None]
